FAERS Safety Report 17863979 (Version 1)
Quarter: 2020Q2

REPORT INFORMATION
  Report Type: Spontaneous
  Country: US (occurrence: US)
  Receive Date: 20200604
  Receipt Date: 20200604
  Transmission Date: 20200714
  Serious: Yes (Hospitalization)
  Sender: FDA-Public Use
  Company Number: None

PATIENT
  Age: 44 Year
  Sex: Male
  Weight: 86 kg

DRUGS (1)
  1. GRISEOFULVIN (GRISEOFULVIN{MIRCOSIZE 250 MG CAP) [Suspect]
     Active Substance: GRISEOFULVIN, MICROSIZE
     Indication: FUNGAL INFECTION
     Route: 048
     Dates: start: 20191122, end: 20191204

REACTIONS (3)
  - Rash [None]
  - Angioedema [None]
  - Pruritus [None]

NARRATIVE: CASE EVENT DATE: 20191202
